FAERS Safety Report 6249962-0 (Version None)
Quarter: 2009Q2

REPORT INFORMATION
  Report Type: 
  Country: None (occurrence: None)
  Receive Date: 20090625
  Receipt Date: 20090609
  Transmission Date: 20091009
  Serious: Yes (Other)
  Sender: FDA-Public Use
  Company Number: MC200900211

PATIENT
  Age: 57 Year
  Sex: Male

DRUGS (9)
  1. CLEVIPREX [Suspect]
     Indication: BLOOD PRESSURE
     Dosage: 1MG/HR INTRAVENOUS, 2MG/HR, 3 MG, HR
     Route: 042
     Dates: start: 20090609, end: 20090609
  2. CLEVIPREX [Suspect]
     Indication: BLOOD PRESSURE
     Dosage: 1MG/HR INTRAVENOUS, 2MG/HR, 3 MG, HR
     Route: 042
     Dates: start: 20090609, end: 20090609
  3. CLEVIPREX [Suspect]
     Indication: BLOOD PRESSURE
     Dosage: 1MG/HR INTRAVENOUS, 2MG/HR, 3 MG, HR
     Route: 042
     Dates: start: 20090609, end: 20090609
  4. FENTANYL [Concomitant]
  5. HYDRALAZINE HCL [Concomitant]
  6. BLOOD AND RELATED PRODUCTS [Concomitant]
  7. APAP(PARACETAMOL) [Concomitant]
  8. CLEVIPREX [Suspect]
  9. CLEVIPREX [Suspect]

REACTIONS (7)
  - CHILLS [None]
  - HYPERSENSITIVITY [None]
  - HYPOTENSION [None]
  - PYREXIA [None]
  - RASH [None]
  - TREMOR [None]
  - VASCULAR RESISTANCE SYSTEMIC DECREASED [None]
